FAERS Safety Report 7419760-0 (Version None)
Quarter: 2011Q2

REPORT INFORMATION
  Report Type: 
  Country: None (occurrence: None)
  Receive Date: 20110413
  Receipt Date: 20110413
  Transmission Date: 20111010
  Serious: No
  Sender: FDA-Public Use
  Company Number: None

PATIENT
  Age: 54 Year
  Sex: Female
  Weight: 80.7403 kg

DRUGS (1)
  1. VENTOLIN HFA [Suspect]
     Indication: BRONCHIAL OBSTRUCTION
     Dosage: 1-2 PUFFS EVERY 6 HOURS INHAL NURSE ONLY IF SERIOUS
     Route: 055
     Dates: start: 20110304

REACTIONS (5)
  - INSOMNIA [None]
  - DIZZINESS [None]
  - NAUSEA [None]
  - FATIGUE [None]
  - FEELING ABNORMAL [None]
